FAERS Safety Report 9685245 (Version 1)
Quarter: 2013Q4

REPORT INFORMATION
  Report Type: Spontaneous
  Country: BR (occurrence: BR)
  Receive Date: 20131113
  Receipt Date: 20131113
  Transmission Date: 20140711
  Serious: Yes (Hospitalization, Other)
  Sender: FDA-Public Use
  Company Number: BR-BAYER-2013-135090

PATIENT
  Age: 31 Year
  Sex: Female
  Weight: 86 kg

DRUGS (2)
  1. MIRENA [Suspect]
     Indication: CONTRACEPTION
     Dosage: 20 ?G/D, CONT
     Route: 015
     Dates: start: 2003, end: 2003
  2. MIRENA [Suspect]
     Indication: CONTRACEPTION
     Dosage: 20 ?G/D, CONT
     Route: 015
     Dates: start: 20120411

REACTIONS (10)
  - Bladder perforation [Recovered/Resolved]
  - Complication of device insertion [Recovered/Resolved]
  - Device dislocation [Recovered/Resolved]
  - Post procedural haemorrhage [Recovered/Resolved]
  - Amenorrhoea [Recovered/Resolved]
  - Vaginal haemorrhage [Recovered/Resolved]
  - Vaginal discharge [Not Recovered/Not Resolved]
  - Device dislocation [Not Recovered/Not Resolved]
  - Ovarian enlargement [None]
  - Adnexa uteri pain [Recovered/Resolved]
